FAERS Safety Report 13747566 (Version 6)
Quarter: 2017Q4

REPORT INFORMATION
  Report Type: Report from Study
  Country: None (occurrence: DE)
  Receive Date: 20170712
  Receipt Date: 20171204
  Transmission Date: 20180320
  Serious: Yes (Death, Hospitalization, Other)
  Sender: FDA-Public Use
  Company Number: DE-ABBVIE-17P-062-2035680-00

PATIENT
  Age: 83 Year
  Sex: Male

DRUGS (17)
  1. DUODOPA [Suspect]
     Active Substance: CARBIDOPA\LEVODOPA
     Indication: PARKINSON^S DISEASE
     Dosage: MD 8 ML; CRD 2.6 ML/H, ED 0.8 ML
     Route: 050
     Dates: start: 20141105, end: 20170703
  2. AUREO [Concomitant]
     Indication: PRODUCT USED FOR UNKNOWN INDICATION
  3. DECODERM TRI [Concomitant]
     Active Substance: FLUPREDNIDENE ACETATE\MICONAZOLE NITRATE
     Indication: PRODUCT USED FOR UNKNOWN INDICATION
     Route: 061
  4. ASPIRIN. [Concomitant]
     Active Substance: ASPIRIN
     Indication: PRODUCT USED FOR UNKNOWN INDICATION
  5. SIMVASTATIN. [Concomitant]
     Active Substance: SIMVASTATIN
     Indication: PRODUCT USED FOR UNKNOWN INDICATION
  6. VALSARTAN 1A PHARMA [Concomitant]
     Active Substance: VALSARTAN
     Indication: PRODUCT USED FOR UNKNOWN INDICATION
  7. NEXIUM [Concomitant]
     Active Substance: ESOMEPRAZOLE MAGNESIUM
     Indication: PRODUCT USED FOR UNKNOWN INDICATION
  8. DUODOPA [Suspect]
     Active Substance: CARBIDOPA\LEVODOPA
     Route: 050
     Dates: start: 20170707
  9. DULCOLAX NOS [Concomitant]
     Active Substance: BISACODYL OR DOCUSATE SODIUM
     Indication: PRODUCT USED FOR UNKNOWN INDICATION
     Dosage: AS REQUIRED
  10. PANTOPRAZOL DURA [Concomitant]
     Indication: PRODUCT USED FOR UNKNOWN INDICATION
  11. MOVICOL [Concomitant]
     Active Substance: POLYETHYLENE GLYCOL 3350\POTASSIUM CHLORIDE\SODIUM BICARBONATE\SODIUM CHLORIDE
     Indication: PRODUCT USED FOR UNKNOWN INDICATION
  12. FUROSEMID [Concomitant]
     Active Substance: FUROSEMIDE
     Indication: PRODUCT USED FOR UNKNOWN INDICATION
  13. KALIUM VERLA [Concomitant]
     Active Substance: POTASSIUM CITRATE
     Indication: PRODUCT USED FOR UNKNOWN INDICATION
  14. TORASEMID-1A PHARMA [Concomitant]
     Active Substance: TORSEMIDE
     Indication: PRODUCT USED FOR UNKNOWN INDICATION
  15. NOVAMINSULFON [Concomitant]
     Active Substance: METAMIZOLE
     Indication: PRODUCT USED FOR UNKNOWN INDICATION
     Dosage: AS REQUIRED
  16. MACROGOL RATIO BALANCE [Concomitant]
     Indication: PRODUCT USED FOR UNKNOWN INDICATION
  17. DOMPERIDON-CT [Concomitant]
     Indication: PRODUCT USED FOR UNKNOWN INDICATION
     Dosage: 3 TIMES PER DAY AS REQUIRED

REACTIONS (35)
  - Urinary tract infection [Unknown]
  - Leukocytosis [Unknown]
  - Enterococcal infection [Unknown]
  - Pyrexia [Recovered/Resolved]
  - Device dislocation [Unknown]
  - Dehydration [Unknown]
  - Cardiac failure [Fatal]
  - Oxygen saturation decreased [Recovering/Resolving]
  - Urinary tract infection [Unknown]
  - Pneumonia aspiration [Recovered/Resolved]
  - Pulmonary congestion [Unknown]
  - Acute kidney injury [Unknown]
  - Pulmonary sepsis [Unknown]
  - Bradycardia [Unknown]
  - Aspiration [Unknown]
  - Pseudomonas infection [Unknown]
  - Tachypnoea [Unknown]
  - General physical health deterioration [Unknown]
  - Hyponatraemia [Unknown]
  - Pneumonia aspiration [Fatal]
  - Febrile infection [Unknown]
  - Productive cough [Unknown]
  - Urosepsis [Unknown]
  - Breath sounds abnormal [Unknown]
  - Hyporesponsive to stimuli [Unknown]
  - Cardiac disorder [Unknown]
  - Pyrexia [Unknown]
  - Device alarm issue [Recovered/Resolved]
  - Leukocyturia [Unknown]
  - Bradycardia [Unknown]
  - Dysphagia [Unknown]
  - Atrioventricular block second degree [Unknown]
  - Pneumonia aspiration [Recovered/Resolved]
  - Pneumonia [Unknown]
  - Respiratory failure [Unknown]

NARRATIVE: CASE EVENT DATE: 2017
